FAERS Safety Report 7011838-9 (Version None)
Quarter: 2010Q3

REPORT INFORMATION
  Report Type: 
  Country: None (occurrence: None)
  Receive Date: 20100923
  Receipt Date: 20090831
  Transmission Date: 20110219
  Serious: No
  Sender: FDA-Public Use
  Company Number: US-WYE-H10789909

PATIENT
  Sex: Female

DRUGS (4)
  1. PREMARIN [Suspect]
     Route: 067
     Dates: start: 20090820, end: 20090830
  2. SYNTHROID [Concomitant]
  3. PREMARIN [Suspect]
     Indication: HOT FLUSH
     Dosage: 0.625MG
     Route: 048
     Dates: start: 20060101, end: 20090501
  4. PREMARIN [Suspect]
     Dosage: 0.625MG
     Route: 048
     Dates: start: 20090820

REACTIONS (6)
  - ABDOMINAL DISTENSION [None]
  - ABDOMINAL PAIN [None]
  - OVERDOSE [None]
  - PAIN IN EXTREMITY [None]
  - VOMITING [None]
  - WEIGHT DECREASED [None]
